FAERS Safety Report 11580661 (Version 1)
Quarter: 2015Q3

REPORT INFORMATION
  Report Type: Spontaneous
  Country: US (occurrence: US)
  Receive Date: 20150930
  Receipt Date: 20150930
  Transmission Date: 20151125
  Serious: Yes (Hospitalization)
  Sender: FDA-Public Use
  Company Number: PHEH2015US018645

PATIENT
  Age: 55 Year
  Sex: Male

DRUGS (1)
  1. ENTRESTO [Suspect]
     Active Substance: SACUBITRIL\VALSARTAN
     Indication: CARDIAC FAILURE
     Dosage: 24/26 MG, UNK
     Route: 048
     Dates: start: 20150805

REACTIONS (4)
  - Blood creatinine increased [Unknown]
  - Weight increased [Unknown]
  - Acute kidney injury [Recovered/Resolved with Sequelae]
  - Blood potassium increased [Unknown]

NARRATIVE: CASE EVENT DATE: 20150819
